FAERS Safety Report 19272292 (Version 1)
Quarter: 2021Q2

REPORT INFORMATION
  Report Type: Other
  Country: US (occurrence: US)
  Receive Date: 20210519
  Receipt Date: 20210519
  Transmission Date: 20210717
  Serious: Yes (Death)
  Sender: FDA-Public Use
  Company Number: US-CHEMI SPA-2110697

PATIENT
  Age: 67 Year
  Sex: Male

DRUGS (10)
  1. OBINUTUZUMAB. [Concomitant]
     Active Substance: OBINUTUZUMAB
  2. BORTEZOMIB. [Concomitant]
     Active Substance: BORTEZOMIB
  3. DECITABINE. [Suspect]
     Active Substance: DECITABINE
  4. LENALIDOMIDE [Concomitant]
     Active Substance: LENALIDOMIDE
  5. ABEMACICLIB [Concomitant]
     Active Substance: ABEMACICLIB
  6. DEXAMETHASONE. [Concomitant]
     Active Substance: DEXAMETHASONE
  7. RITUXIMAB. [Concomitant]
     Active Substance: RITUXIMAB
  8. COPANLISIB. [Concomitant]
     Active Substance: COPANLISIB
  9. CYTARABINE. [Concomitant]
     Active Substance: CYTARABINE
  10. VENETOCLAX. [Concomitant]
     Active Substance: VENETOCLAX

REACTIONS (4)
  - Product use in unapproved indication [Fatal]
  - Disease progression [Fatal]
  - Drug ineffective [Fatal]
  - Off label use [Fatal]
